FAERS Safety Report 9578605 (Version 1)
Quarter: 2013Q4

REPORT INFORMATION
  Report Type: Spontaneous
  Country: US (occurrence: US)
  Receive Date: 20131001
  Receipt Date: 20131001
  Transmission Date: 20140711
  Serious: No
  Sender: FDA-Public Use
  Company Number: US-AMGEN-USASP2013014230

PATIENT
  Age: 78 Year
  Sex: Female
  Weight: 113.38 kg

DRUGS (9)
  1. ENBREL [Suspect]
     Indication: PRODUCT USED FOR UNKNOWN INDICATION
     Dosage: 50 MG, 2 TIMES/WK
     Route: 058
  2. ATORVASTATIN [Concomitant]
     Dosage: 10 MG, UNK
  3. SIMVASTATIN [Concomitant]
     Dosage: 20 MG, UNK
  4. TAMSULOSIN [Concomitant]
     Dosage: 0.4 MG, UNK
  5. LISINOPRIL [Concomitant]
     Dosage: 20 MG, UNK
  6. JANUVIA [Concomitant]
     Dosage: 50 MG, UNK
  7. GLIPIZIDE [Concomitant]
     Dosage: 10 MG, UNK
  8. BABY ASPIRIN [Concomitant]
     Dosage: 81 MG, UNK
  9. VITAMIN D                          /00107901/ [Concomitant]
     Dosage: 1000 UNIT, UNK

REACTIONS (3)
  - Skin reaction [Unknown]
  - Pruritus [Unknown]
  - Urticaria [Unknown]
